FAERS Safety Report 15215675 (Version 1)
Quarter: 2018Q3

REPORT INFORMATION
  Report Type: Spontaneous
  Country: US (occurrence: US)
  Receive Date: 20180703
  Receipt Date: 20180703
  Transmission Date: 20181010
  Serious: Yes (Life-Threatening)
  Sender: FDA-Public Use
  Company Number: None

PATIENT
  Age: 28 Year
  Weight: 51.75 kg

DRUGS (2)
  1. BUSPIRONE [Suspect]
     Active Substance: BUSPIRONE HYDROCHLORIDE
     Indication: ANXIETY
     Dosage: ?          QUANTITY:1 TABLET(S);?
     Route: 048
  2. LORAZEPAM. [Suspect]
     Active Substance: LORAZEPAM
     Indication: ANXIETY
     Dosage: ?          QUANTITY:.5 TABLET(S);?
     Route: 048

REACTIONS (5)
  - Pharyngeal oedema [None]
  - Cow^s milk intolerance [None]
  - Migraine [None]
  - Vision blurred [None]
  - Arrhythmia [None]

NARRATIVE: CASE EVENT DATE: 20180521
